FAERS Safety Report 6613995-2 (Version None)
Quarter: 2010Q1

REPORT INFORMATION
  Report Type: 
  Country: None (occurrence: None)
  Receive Date: 20100304
  Receipt Date: 20100223
  Transmission Date: 20100710
  Serious: Yes (Life-Threatening, Hospitalization)
  Sender: FDA-Public Use
  Company Number: US-KINGPHARMUSA00001-K200900610

PATIENT
  Age: 56 Year
  Sex: Female

DRUGS (28)
  1. ALTACE [Suspect]
     Indication: HYPERTENSION
     Dosage: 5 MG, QD
     Route: 048
     Dates: start: 20090414, end: 20090516
  2. ALTACE [Suspect]
     Dosage: 5 MG, QD
     Route: 048
     Dates: start: 20090501, end: 20090516
  3. MESTINON [Concomitant]
     Indication: MYASTHENIA GRAVIS
     Dosage: 540 MG, UNK
     Route: 048
     Dates: start: 19670101
  4. URBASON [Concomitant]
     Indication: MYASTHENIA GRAVIS
     Dosage: UNK %, UNK
     Route: 048
     Dates: start: 19850101
  5. URBASON [Concomitant]
     Indication: ADRENAL ATROPHY
  6. OMEP [Concomitant]
     Indication: GASTRIC DISORDER
     Dosage: 40 MG, QD
     Route: 048
     Dates: start: 19850101
  7. ACTONEL [Concomitant]
     Indication: OSTEOPOROSIS
     Dosage: 35 MG, QW
     Route: 048
     Dates: start: 19850101
  8. LYRICA [Concomitant]
     Indication: MUSCULAR WEAKNESS
     Dosage: 50 MG, UNK
     Route: 048
     Dates: start: 20090414, end: 20090615
  9. ROXITHROMYCIN [Concomitant]
     Dosage: UNK
     Dates: start: 20090513, end: 20090529
  10. CEFTRIAXONE (ROCEPHIN) [Concomitant]
     Dosage: UNK
     Dates: start: 20090513, end: 20090522
  11. TORASEMIDE [Concomitant]
     Dosage: UNK
     Dates: start: 20090414, end: 20090615
  12. PANTOZOL [Concomitant]
     Dosage: UNK
     Dates: start: 20090414, end: 20090615
  13. FOLSAN [Concomitant]
     Dosage: UNK
     Dates: start: 20090414, end: 20090615
  14. DULOXETINE HYDROCHLORIDE [Concomitant]
     Dosage: UNK
     Dates: start: 20090414, end: 20090615
  15. CALCIUM [Concomitant]
     Dosage: UNK
     Dates: start: 20090414, end: 20090615
  16. ACETYLCYSTEINE [Concomitant]
     Dosage: UNK
     Dates: start: 20090414, end: 20090615
  17. VALORON N [Concomitant]
     Dosage: UNK
     Dates: start: 20090414, end: 20090615
  18. CILOXAN [Concomitant]
     Dosage: UNK
     Dates: start: 20090414, end: 20090615
  19. NASONEX [Concomitant]
     Dosage: UNK
     Dates: start: 20090414, end: 20090615
  20. BUDESONIDE [Concomitant]
     Dosage: UNK
     Dates: start: 20090414, end: 20090616
  21. NYSTATIN [Concomitant]
     Dosage: UNK
     Dates: start: 20090414, end: 20090519
  22. SPIRIVA [Concomitant]
     Dosage: UNK
     Dates: start: 20090414, end: 20090615
  23. FORADIL [Concomitant]
     Dosage: UNK
     Dates: start: 20090414, end: 20090522
  24. COLDASTOP [Concomitant]
     Dosage: UNK
     Dates: start: 20090414, end: 20090615
  25. INNOHEP [Concomitant]
     Dosage: UNK
     Dates: start: 20090414, end: 20090615
  26. AMBROXOL [Concomitant]
     Dosage: UNK
     Dates: start: 20090401
  27. BERODUAL [Concomitant]
     Dosage: UNK
     Dates: start: 20090401
  28. CEFPODOXIME PROXETIL [Concomitant]
     Dosage: UNK
     Dates: start: 20090523, end: 20090529

REACTIONS (24)
  - ANGIOEDEMA [None]
  - ARTHRALGIA [None]
  - ATRIAL HYPERTROPHY [None]
  - BLOOD PRESSURE INCREASED [None]
  - BONE PAIN [None]
  - CIRCULATORY COLLAPSE [None]
  - DEPRESSED LEVEL OF CONSCIOUSNESS [None]
  - DYSPHAGIA [None]
  - DYSPNOEA [None]
  - EXCORIATION [None]
  - FALL [None]
  - FOLATE DEFICIENCY [None]
  - HAEMATOMA [None]
  - LARYNGEAL OEDEMA [None]
  - OROPHARYNGEAL PAIN [None]
  - PANIC ATTACK [None]
  - PHARYNGEAL OEDEMA [None]
  - PNEUMONIA [None]
  - POLYURIA [None]
  - PULSE PRESSURE DECREASED [None]
  - RESPIRATORY DISORDER [None]
  - SWOLLEN TONGUE [None]
  - THROAT TIGHTNESS [None]
  - URINARY INCONTINENCE [None]
